FAERS Safety Report 6265976-9 (Version None)
Quarter: 2009Q3

REPORT INFORMATION
  Report Type: 
  Country: None (occurrence: None)
  Receive Date: 20090709
  Receipt Date: 20090709
  Transmission Date: 20100115
  Serious: Yes (Other)
  Sender: FDA-Public Use
  Company Number: None

PATIENT
  Sex: Male
  Weight: 90.7194 kg

DRUGS (1)
  1. ADDERALL 30 [Suspect]
     Indication: ATTENTION DEFICIT/HYPERACTIVITY DISORDER
     Dosage: ONCE A DAY PO
     Route: 048
     Dates: start: 20080701, end: 20081023

REACTIONS (9)
  - ANGER [None]
  - FEELING ABNORMAL [None]
  - HALLUCINATION, AUDITORY [None]
  - HALLUCINATION, VISUAL [None]
  - HUNGER [None]
  - HYPOPHAGIA [None]
  - INSOMNIA [None]
  - PSYCHOTIC DISORDER [None]
  - WEIGHT DECREASED [None]
